FAERS Safety Report 8007972-7 (Version None)
Quarter: 2011Q4

REPORT INFORMATION
  Report Type: 
  Country: None (occurrence: None)
  Receive Date: 20111222
  Receipt Date: 20111222
  Transmission Date: 20120403
  Serious: No
  Sender: FDA-Public Use
  Company Number: None

PATIENT
  Sex: Female
  Weight: 58.9676 kg

DRUGS (1)
  1. RESTASIS [Suspect]
     Indication: EYE DISORDER
     Dosage: 1 DROP 2 TIMES DAILY EYE LEFT EYE ONLY
     Route: 047
     Dates: start: 20110915

REACTIONS (2)
  - SWOLLEN TONGUE [None]
  - LIP SWELLING [None]
